FAERS Safety Report 7177200-3 (Version None)
Quarter: 2010Q4

REPORT INFORMATION
  Report Type: 
  Country: None (occurrence: None)
  Receive Date: 20101220
  Receipt Date: 20101208
  Transmission Date: 20110411
  Serious: Yes (Hospitalization, Other)
  Sender: FDA-Public Use
  Company Number: US-ROCHE-727235

PATIENT
  Sex: Male

DRUGS (5)
  1. ACCUTANE [Suspect]
     Indication: FOLLICULITIS
     Route: 065
     Dates: start: 19970801
  2. ACCUTANE [Suspect]
     Route: 065
     Dates: start: 20000101
  3. ACCUTANE [Suspect]
     Route: 065
     Dates: start: 20010101, end: 20010201
  4. NAPROSYN [Concomitant]
     Dosage: FREQUENCY: DAILY
     Dates: start: 19880101, end: 20000101
  5. HYDROCODONE [Concomitant]
     Indication: MUSCULOSKELETAL PAIN

REACTIONS (20)
  - ANAEMIA [None]
  - BENIGN PROSTATIC HYPERPLASIA [None]
  - BLOOD CHOLESTEROL INCREASED [None]
  - COLITIS [None]
  - COLONIC STENOSIS [None]
  - CROHN'S DISEASE [None]
  - DEPRESSION [None]
  - DIVERTICULUM INTESTINAL [None]
  - GASTROINTESTINAL HAEMORRHAGE [None]
  - GASTROINTESTINAL INJURY [None]
  - HAEMATURIA [None]
  - ILEAL ULCER [None]
  - INFLAMMATORY BOWEL DISEASE [None]
  - INTESTINAL OBSTRUCTION [None]
  - INTESTINAL PERFORATION [None]
  - IRON DEFICIENCY ANAEMIA [None]
  - IRRITABLE BOWEL SYNDROME [None]
  - ORAL HERPES [None]
  - OSTEOPENIA [None]
  - TENDONITIS [None]
